FAERS Safety Report 19501677 (Version 1)
Quarter: 2021Q3

REPORT INFORMATION
  Report Type: Spontaneous
  Country: US (occurrence: US)
  Receive Date: 20210702
  Receipt Date: 20210702
  Transmission Date: 20211014
  Serious: Yes (Life-Threatening, Hospitalization)
  Sender: FDA-Public Use
  Company Number: None

PATIENT

DRUGS (1)
  1. METHOTREXATE. [Suspect]
     Active Substance: METHOTREXATE
     Indication: FALL
     Route: 042
     Dates: start: 20210624, end: 20210625

REACTIONS (8)
  - Acute respiratory failure [None]
  - Pharyngeal haemorrhage [None]
  - Chemotherapeutic drug level increased [None]
  - Mucosal inflammation [None]
  - Toxicity to various agents [None]
  - Febrile neutropenia [None]
  - Acute kidney injury [None]
  - Dialysis [None]

NARRATIVE: CASE EVENT DATE: 20210625
